FAERS Safety Report 9809032 (Version 1)
Quarter: 2014Q1

REPORT INFORMATION
  Report Type: Spontaneous
  Country: DE (occurrence: DE)
  Receive Date: 20140110
  Receipt Date: 20140110
  Transmission Date: 20141002
  Serious: Yes (Other)
  Sender: FDA-Public Use
  Company Number: PHHY2014DE001988

PATIENT
  Age: 51 Year
  Sex: Male

DRUGS (3)
  1. RASILEZ [Suspect]
     Indication: HYPERTENSION
     Dosage: 1 DF (300 MG), QD
     Dates: start: 2010, end: 2013
  2. RASILEZ [Suspect]
     Dosage: 1 DF (150 MG), QD
     Dates: start: 2013, end: 201307
  3. RASILEZ [Suspect]
     Dosage: 0.25 DF (150 MG), PER DAY
     Route: 048
     Dates: start: 201307

REACTIONS (2)
  - Gastritis [Not Recovered/Not Resolved]
  - Wrong technique in drug usage process [Not Recovered/Not Resolved]
